FAERS Safety Report 14126655 (Version 1)
Quarter: 2017Q4

REPORT INFORMATION
  Report Type: Spontaneous
  Country: JP (occurrence: JP)
  Receive Date: 20171025
  Receipt Date: 20171025
  Transmission Date: 20180321
  Serious: Yes (Other)
  Sender: FDA-Public Use
  Company Number: JP-ALLERGAN-1760280US

PATIENT
  Sex: Male

DRUGS (4)
  1. URSODEOXYCHOLIC ACID - BP [Suspect]
     Active Substance: URSODIOL
     Dosage: 2 DF, TID
     Route: 048
  2. URSODEOXYCHOLIC ACID - BP [Suspect]
     Active Substance: URSODIOL
     Indication: HEPATITIS C
     Dosage: 1 DF, TID
     Route: 048
  3. INTERFERON [Concomitant]
     Active Substance: INTERFERON
     Indication: HEPATITIS C
     Dosage: 1 DF, Q WEEK
     Route: 051
  4. RIBAVIRIN. [Concomitant]
     Active Substance: RIBAVIRIN
     Indication: HEPATITIS C
     Route: 048

REACTIONS (4)
  - Alanine aminotransferase abnormal [Unknown]
  - Gallbladder cancer [Unknown]
  - Aspartate aminotransferase abnormal [Unknown]
  - Chronic hepatitis [Unknown]
